FAERS Safety Report 9016040 (Version 2)
Quarter: 2013Q1

REPORT INFORMATION
  Report Type: Spontaneous
  Country: DK (occurrence: CH)
  Receive Date: 20130116
  Receipt Date: 20130320
  Transmission Date: 20140127
  Serious: Yes (Other)
  Sender: FDA-Public Use
  Company Number: CH-FRI-1000041665

PATIENT
  Sex: Female

DRUGS (5)
  1. ESCITALOPRAM [Suspect]
     Indication: DEPRESSION
     Dates: start: 2003
  2. LEVAXIN [Concomitant]
     Dates: start: 2011
  3. AUGMENTIN [Concomitant]
     Indication: SINUSITIS
  4. DEPAKIN [Concomitant]
     Indication: CONVULSION
  5. RIVOTRIL [Concomitant]
     Indication: CONVULSION

REACTIONS (1)
  - Grand mal convulsion [Unknown]
